FAERS Safety Report 5375152-X (Version None)
Quarter: 2007Q2

REPORT INFORMATION
  Report Type: 
  Country: None (occurrence: None)
  Receive Date: 20070629
  Receipt Date: 20061025
  Transmission Date: 20071010
  Serious: Yes (Other)
  Sender: FDA-Public Use
  Company Number: US-ASTRAZENECA-2002UW01246

PATIENT
  Age: 62 Year
  Sex: Female
  Weight: 61.8 kg

DRUGS (1)
  1. TAMOXIFEN CITRATE [Suspect]
     Indication: BREAST CANCER
     Route: 048
     Dates: start: 20020117

REACTIONS (7)
  - DEEP VEIN THROMBOSIS [None]
  - NAUSEA [None]
  - PAIN IN EXTREMITY [None]
  - SKIN BURNING SENSATION [None]
  - VAGINAL DISCHARGE [None]
  - VARICOSE VEIN [None]
  - VASODILATATION [None]
